FAERS Safety Report 9664142 (Version 2)
Quarter: 2014Q1

REPORT INFORMATION
  Report Type: Spontaneous
  Country: CA (occurrence: CA)
  Receive Date: 20131101
  Receipt Date: 20140121
  Transmission Date: 20141002
  Serious: Yes (Other)
  Sender: FDA-Public Use
  Company Number: CA-ELI_LILLY_AND_COMPANY-CA201310007879

PATIENT
  Age: 75 Year
  Sex: Male

DRUGS (3)
  1. HUMALOG LISPRO [Suspect]
     Indication: TYPE 1 DIABETES MELLITUS
     Dosage: UNK
     Route: 065
  2. LEVEMIR [Interacting]
     Indication: TYPE 1 DIABETES MELLITUS
     Dosage: 28 U, QD
     Route: 065
  3. BIAXIN [Interacting]
     Indication: ACUTE SINUSITIS
     Dosage: 500 MG, BID
     Route: 048
     Dates: start: 20130415, end: 20130417

REACTIONS (5)
  - Abnormal behaviour [Recovered/Resolved]
  - Drug interaction [Recovered/Resolved]
  - Muscle spasticity [Recovered/Resolved]
  - Hypoglycaemia [Recovered/Resolved]
  - Wrong drug administered [Unknown]
